FAERS Safety Report 7069693-7 (Version None)
Quarter: 2010Q4

REPORT INFORMATION
  Report Type: 
  Country: None (occurrence: None)
  Receive Date: 20101028
  Receipt Date: 20100514
  Transmission Date: 20110411
  Serious: No
  Sender: FDA-Public Use
  Company Number: US-WYE-H15287110

PATIENT
  Age: 77 Year
  Sex: Female

DRUGS (4)
  1. EFFEXOR [Suspect]
     Indication: STRESS
     Dates: start: 20030101
  2. EFFEXOR [Suspect]
     Dosage: INCREASED FOR A SHORT TIME, THEN STOPPED
  3. THYROID [Concomitant]
  4. ATIVAN [Concomitant]

REACTIONS (5)
  - ABDOMINAL DISTENSION [None]
  - CONDITION AGGRAVATED [None]
  - GASTROENTERITIS BACTERIAL [None]
  - STRESS [None]
  - WEIGHT INCREASED [None]
